FAERS Safety Report 9147992 (Version 1)
Quarter: 2013Q1

REPORT INFORMATION
  Report Type: Spontaneous
  Country: US (occurrence: US)
  Receive Date: 20130307
  Receipt Date: 20130307
  Transmission Date: 20140127
  Serious: No
  Sender: FDA-Public Use
  Company Number: US-009507513-1303USA002841

PATIENT
  Sex: Female

DRUGS (1)
  1. COSOPT PF [Suspect]
     Dosage: 1 DROP IN EACH EYE, TID
     Route: 047
     Dates: start: 20130128

REACTIONS (4)
  - Drug dose omission [Unknown]
  - Product packaging quantity issue [Unknown]
  - Wrong technique in drug usage process [Unknown]
  - No adverse event [Unknown]
